FAERS Safety Report 9014334 (Version 2)
Quarter: 2013Q3

REPORT INFORMATION
  Report Type: Spontaneous
  Country: US (occurrence: US)
  Receive Date: 20130115
  Receipt Date: 20130917
  Transmission Date: 20140515
  Serious: Yes (Hospitalization, Other)
  Sender: FDA-Public Use
  Company Number: US-009507513-1301USA005275

PATIENT
  Sex: Female
  Weight: 45.35 kg

DRUGS (1)
  1. NUVARING [Suspect]
     Indication: CONTRACEPTION
     Dosage: UNK
     Route: 067
     Dates: start: 200603, end: 200606

REACTIONS (3)
  - Stress [Not Recovered/Not Resolved]
  - Cerebrovascular accident [Recovered/Resolved]
  - Decreased appetite [Unknown]
